FAERS Safety Report 6191085-3 (Version None)
Quarter: 2009Q2

REPORT INFORMATION
  Report Type: 
  Country: None (occurrence: None)
  Receive Date: 20090513
  Receipt Date: 20090513
  Transmission Date: 20091009
  Serious: Yes (Other)
  Sender: FDA-Public Use
  Company Number: None

PATIENT
  Age: 60 Year
  Sex: Female
  Weight: 50.8029 kg

DRUGS (1)
  1. MUCINEX DM [Suspect]
     Dosage: 1200MG GUAIFENESIN 600MG DEXTROMETHORPHAN 12 HOURS
     Dates: start: 20090409, end: 20090410

REACTIONS (7)
  - ACTIVITIES OF DAILY LIVING IMPAIRED [None]
  - ARTHRALGIA [None]
  - CHILLS [None]
  - HYPERHIDROSIS [None]
  - HYPOPHAGIA [None]
  - MUSCULAR WEAKNESS [None]
  - MYALGIA [None]
